FAERS Safety Report 25836652 (Version 1)
Quarter: 2025Q3

REPORT INFORMATION
  Report Type: Spontaneous
  Country: MX (occurrence: MX)
  Receive Date: 20250923
  Receipt Date: 20250923
  Transmission Date: 20251021
  Serious: Yes (Life-Threatening, Other)
  Sender: TAKEDA
  Company Number: MX-TAKEDA-2025TUS083242

PATIENT
  Age: 37 Year
  Sex: Male
  Weight: 75 kg

DRUGS (2)
  1. ICLUSIG [Suspect]
     Active Substance: PONATINIB HYDROCHLORIDE
     Indication: Acute lymphocytic leukaemia
     Dosage: 45 MILLIGRAM, QD
     Dates: start: 202209
  2. ICLUSIG [Suspect]
     Active Substance: PONATINIB HYDROCHLORIDE
     Dosage: 30 MILLIGRAM, QD
     Dates: end: 202507

REACTIONS (2)
  - Acute lymphocytic leukaemia recurrent [Unknown]
  - Central nervous system leukaemia [Unknown]

NARRATIVE: CASE EVENT DATE: 20250701
